FAERS Safety Report 8534490-X (Version None)
Quarter: 2012Q3

REPORT INFORMATION
  Report Type: 
  Country: None (occurrence: None)
  Receive Date: 20120724
  Receipt Date: 20120723
  Transmission Date: 20120928
  Serious: Yes (Hospitalization)
  Sender: FDA-Public Use
  Company Number: DE-ROCHE-777913

PATIENT
  Sex: Male
  Weight: 80 kg

DRUGS (2)
  1. MABTHERA [Suspect]
     Indication: CHRONIC LYMPHOCYTIC LEUKAEMIA
     Dosage: FORM: INFUSION, FREQUENCY: DAY 1, DATE OF LAST DOSE PRIOR TO SAE: 22 MARCH 2011
     Route: 042
  2. CHLORAMBUCIL [Suspect]
     Indication: CHRONIC LYMPHOCYTIC LEUKAEMIA
     Dosage: FREQUENCY: D1+D15
     Route: 048
     Dates: start: 20101028, end: 20110322

REACTIONS (1)
  - POST PROCEDURAL HAEMORRHAGE [None]
